FAERS Safety Report 23626604 (Version 1)
Quarter: 2024Q1

REPORT INFORMATION
  Report Type: Spontaneous
  Country: CH (occurrence: CH)
  Receive Date: 20240313
  Receipt Date: 20240313
  Transmission Date: 20240410
  Serious: Yes (Hospitalization)
  Sender: FDA-Public Use
  Company Number: None

PATIENT
  Age: 24 Year
  Sex: Female

DRUGS (3)
  1. CIPRALEX [Suspect]
     Active Substance: ESCITALOPRAM OXALATE
     Indication: Product used for unknown indication
     Route: 048
  2. CIPRALEX [Suspect]
     Active Substance: ESCITALOPRAM OXALATE
     Indication: Product used for unknown indication
     Dosage: TIME INTERVAL: TOTAL: IN TOTAL?INTENTIONAL OVERDOSE: 900MG
     Route: 048
     Dates: start: 20240201, end: 20240201
  3. ACETAMINOPHEN [Suspect]
     Active Substance: ACETAMINOPHEN
     Indication: Product used for unknown indication
     Dosage: TIME INTERVAL: TOTAL: IN TOTAL
     Route: 048
     Dates: start: 20240201, end: 20240201

REACTIONS (6)
  - Long QT syndrome [Recovered/Resolved]
  - Nausea [Recovered/Resolved]
  - Muscular weakness [Recovered/Resolved]
  - Blood potassium decreased [Recovered/Resolved]
  - Somnolence [Recovered/Resolved]
  - Intentional overdose [Recovered/Resolved]

NARRATIVE: CASE EVENT DATE: 20240201
